FAERS Safety Report 14878677 (Version 1)
Quarter: 2018Q2

REPORT INFORMATION
  Report Type: Spontaneous
  Country: US (occurrence: US)
  Receive Date: 20180511
  Receipt Date: 20180511
  Transmission Date: 20180711
  Serious: No
  Sender: FDA-Public Use
  Company Number: US-AMGEN-USASP2018062072

PATIENT
  Age: 76 Year
  Sex: Male

DRUGS (8)
  1. FOLIC ACID. [Concomitant]
     Active Substance: FOLIC ACID
     Dosage: 800 MUG, UNK
  2. TERBINAFINE. [Concomitant]
     Active Substance: TERBINAFINE
     Dosage: UNK
  3. VITAMIN C [Concomitant]
     Active Substance: ASCORBIC ACID
     Dosage: 1000 MG, UNK
  4. METHOTREXATE. [Concomitant]
     Active Substance: METHOTREXATE
     Dosage: 2.5 MG, UNK
  5. CITRIC ACID [Concomitant]
     Active Substance: CITRIC ACID MONOHYDRATE
     Dosage: UNK
  6. CARTIA XT [Concomitant]
     Active Substance: DILTIAZEM HYDROCHLORIDE
     Dosage: UNK (180/24 HR)
  7. ENBREL [Suspect]
     Active Substance: ETANERCEPT
     Indication: RAYNAUD^S PHENOMENON
     Dosage: 50 MG, QWK
     Route: 058
  8. ASCORBIC ACID. [Concomitant]
     Active Substance: ASCORBIC ACID
     Dosage: UNK

REACTIONS (3)
  - Off label use [Unknown]
  - Red blood cell count decreased [Not Recovered/Not Resolved]
  - Onychomycosis [Not Recovered/Not Resolved]
